FAERS Safety Report 9298801 (Version 1)
Quarter: 2013Q2

REPORT INFORMATION
  Report Type: Spontaneous
  Country: US (occurrence: US)
  Receive Date: 20130520
  Receipt Date: 20130520
  Transmission Date: 20140414
  Serious: Yes (Hospitalization)
  Sender: FDA-Public Use
  Company Number: US-BAYER-2013-060601

PATIENT
  Age: 36 Year
  Sex: Female
  Weight: 83.45 kg

DRUGS (5)
  1. YAZ [Suspect]
  2. BEYAZ [Suspect]
  3. YASMIN [Suspect]
  4. NASONEX [Concomitant]
     Dosage: 50 MG, UNK
  5. IBUPROFEN [Concomitant]

REACTIONS (2)
  - Pulmonary embolism [Recovered/Resolved]
  - Deep vein thrombosis [None]
